FAERS Safety Report 7005698-X (Version None)
Quarter: 2010Q3

REPORT INFORMATION
  Report Type: 
  Country: None (occurrence: None)
  Receive Date: 20100921
  Receipt Date: 20100909
  Transmission Date: 20110219
  Serious: Yes (Death)
  Sender: FDA-Public Use
  Company Number: JP-MERCK-1009USA01810

PATIENT

DRUGS (3)
  1. FOSAMAX [Suspect]
     Route: 048
  2. LIPITOR [Concomitant]
     Dosage: DAILY DOSAGE UNKNOWN
     Route: 048
  3. AMLODIPINE BESYLATE [Concomitant]
     Dosage: DAILY DOSAGE UNKNOWN
     Route: 048

REACTIONS (1)
  - OESOPHAGEAL CARCINOMA [None]
